FAERS Safety Report 12403726 (Version 1)
Quarter: 2016Q2

REPORT INFORMATION
  Report Type: Spontaneous
  Country: US (occurrence: US)
  Receive Date: 20160525
  Receipt Date: 20160525
  Transmission Date: 20160815
  Serious: No
  Sender: FDA-Public Use
  Company Number: US-SUN PHARMACEUTICAL INDUSTRIES LTD-2015US-101606

PATIENT
  Sex: Male
  Weight: 81.18 kg

DRUGS (3)
  1. OXYCODONE [Suspect]
     Active Substance: OXYCODONE
     Indication: PELVIC PAIN
  2. OXYCODONE [Suspect]
     Active Substance: OXYCODONE
     Indication: NEOPLASM MALIGNANT
     Dosage: 1 - 1 1/2 TABLET, DAILY
     Route: 048
  3. OXYCODONE [Suspect]
     Active Substance: OXYCODONE
     Indication: GROIN PAIN

REACTIONS (1)
  - Drug ineffective [Not Recovered/Not Resolved]
